FAERS Safety Report 21216625 (Version 1)
Quarter: 2022Q3

REPORT INFORMATION
  Report Type: Spontaneous
  Country: US (occurrence: None)
  Receive Date: 20220815
  Receipt Date: 20220815
  Transmission Date: 20221026
  Serious: Yes (Hospitalization)
  Sender: FDA-Public Use
  Company Number: None

PATIENT
  Age: 73 Year
  Sex: Female
  Weight: 65.25 kg

DRUGS (9)
  1. MAGNESIUM CITRATE [Suspect]
     Active Substance: MAGNESIUM CITRATE
     Indication: Constipation
     Dosage: OTHER QUANTITY : 10 OUNCE(S);?
     Route: 048
     Dates: start: 20220528, end: 20220727
  2. LISINOPRIL [Concomitant]
     Active Substance: LISINOPRIL
  3. QUETIAPINE [Concomitant]
     Active Substance: QUETIAPINE
  4. TRULANCE [Concomitant]
     Active Substance: PLECANATIDE
  5. PANTOPRAZOLE [Concomitant]
     Active Substance: PANTOPRAZOLE
  6. ESTRADIOL [Concomitant]
     Active Substance: ESTRADIOL
  7. PROGESTERONE [Concomitant]
     Active Substance: PROGESTERONE
  8. GLYCOPYRROLATE [Concomitant]
     Active Substance: GLYCOPYRROLATE
  9. MULTIPLE VITAMIN [Concomitant]

REACTIONS (3)
  - Large intestine infection [None]
  - Sepsis [None]
  - Fatigue [None]

NARRATIVE: CASE EVENT DATE: 20220601
